FAERS Safety Report 5108674-7 (Version None)
Quarter: 2006Q3

REPORT INFORMATION
  Report Type: 
  Country: None (occurrence: None)
  Receive Date: 20060915
  Receipt Date: 20060830
  Transmission Date: 20061208
  Serious: Yes (Hospitalization)
  Sender: FDA-Public Use
  Company Number: 6025431

PATIENT
  Age: 90 Year
  Sex: Male

DRUGS (7)
  1. BISOPROLOL FUMARATE [Suspect]
     Indication: ESSENTIAL HYPERTENSION
     Dosage: 1,25 MG (1,25 MG,1 IN 1 D) ORAL
     Route: 048
     Dates: end: 20060314
  2. FUROSEMIDE [Suspect]
     Indication: DRUG USE FOR UNKNOWN INDICATION
     Dosage: ORAL
     Route: 048
     Dates: end: 20060315
  3. RAMIPRIL [Suspect]
     Indication: ESSENTIAL HYPERTENSION
     Dosage: 2,5 MG (1,25 MG, 2 IN 1 D) ORAL
     Route: 048
     Dates: start: 20060212, end: 20060314
  4. DISCOTRINE 10 (GLYCERYL TRINITRATE) [Concomitant]
  5. EUPHYTOSE (TABLET) (VALERIANA OFFICINALIS EXTRACT, CRATAEGUS LAEVIGATA [Concomitant]
  6. MOPRAL 20 (OMEPRAZOLE) [Concomitant]
  7. PLAVIX [Concomitant]

REACTIONS (6)
  - FALL [None]
  - HYPONATRAEMIA [None]
  - MALAISE [None]
  - NEPHROANGIOSCLEROSIS [None]
  - ORTHOSTATIC HYPOTENSION [None]
  - RENAL FAILURE [None]
